FAERS Safety Report 6442560-5 (Version None)
Quarter: 2009Q4

REPORT INFORMATION
  Report Type: 
  Country: None (occurrence: None)
  Receive Date: 20091117
  Receipt Date: 20091105
  Transmission Date: 20100525
  Serious: Yes (Other)
  Sender: FDA-Public Use
  Company Number: US-JNJFOC-20090907374

PATIENT
  Sex: Female
  Weight: 56.2 kg

DRUGS (5)
  1. DORIBAX [Suspect]
     Indication: PNEUMONIA ASPIRATION
     Route: 041
     Dates: start: 20090525, end: 20090601
  2. METHADONE HCL [Concomitant]
     Indication: PAIN
     Route: 048
  3. VORICONAZOLE [Concomitant]
     Indication: PNEUMONIA ASPIRATION
     Route: 048
  4. LEVALBUTEROL HCL [Concomitant]
     Indication: ACUTE RESPIRATORY DISTRESS SYNDROME
  5. PANTOPRAZOLE [Concomitant]
     Indication: GASTROINTESTINAL DISORDER THERAPY
     Route: 042

REACTIONS (1)
  - LEUKOENCEPHALOPATHY [None]
